FAERS Safety Report 8251108-4 (Version None)
Quarter: 2012Q1

REPORT INFORMATION
  Report Type: 
  Country: None (occurrence: None)
  Receive Date: 20120320
  Receipt Date: 20120106
  Transmission Date: 20120608
  Serious: No
  Sender: FDA-Public Use
  Company Number: US-2012-10020

PATIENT

DRUGS (1)
  1. SAMSCA [Suspect]

REACTIONS (1)
  - URINARY TRACT OBSTRUCTION [None]
